FAERS Safety Report 7880759-1 (Version None)
Quarter: 2011Q4

REPORT INFORMATION
  Report Type: 
  Country: None (occurrence: None)
  Receive Date: 20111101
  Receipt Date: 20111028
  Transmission Date: 20120403
  Serious: Yes (Hospitalization, Other)
  Sender: FDA-Public Use
  Company Number: BR-ROCHE-708802

PATIENT
  Sex: Female
  Weight: 50 kg

DRUGS (14)
  1. ACTEMRA [Suspect]
     Indication: RHEUMATOID ARTHRITIS
     Dosage: ROUTE: ENDOVENOUS, FORM: INFUSION
     Route: 042
     Dates: start: 20090917, end: 20090917
  2. ACTEMRA [Suspect]
     Route: 042
  3. ACTEMRA [Suspect]
     Route: 042
  4. CORTISONE ACETATE [Concomitant]
  5. CAPTOPRIL [Concomitant]
     Indication: HYPERTENSION
  6. ACTEMRA [Suspect]
     Route: 042
     Dates: start: 20091001, end: 20091001
  7. ACTEMRA [Suspect]
     Route: 042
     Dates: start: 20101201, end: 20101201
  8. ACTEMRA [Suspect]
     Route: 042
  9. ACTEMRA [Suspect]
     Route: 042
  10. ACETAMINOPHEN [Concomitant]
  11. ATENOLOL [Concomitant]
     Indication: HYPERTENSION
  12. ASPIRIN [Concomitant]
  13. ACTEMRA [Suspect]
     Route: 042
  14. PREDNISOLONE [Concomitant]

REACTIONS (6)
  - THERAPEUTIC RESPONSE DECREASED [None]
  - INFLUENZA [None]
  - IMMUNODEFICIENCY [None]
  - GASTROENTERITIS [None]
  - ARTHROPATHY [None]
  - SINUSITIS [None]
